FAERS Safety Report 20856730 (Version 1)
Quarter: 2022Q2

REPORT INFORMATION
  Report Type: Spontaneous
  Country: US (occurrence: US)
  Receive Date: 20220520
  Receipt Date: 20220520
  Transmission Date: 20220721
  Serious: No
  Sender: FDA-Public Use
  Company Number: US-SANOFI-01100194

PATIENT
  Age: 34 Year
  Sex: Female

DRUGS (1)
  1. DUPIXENT [Suspect]
     Active Substance: DUPILUMAB
     Indication: Asthma
     Dosage: UNK, DRUG STRUCTURE DOSAGE : UNKNOWN DRUG INTERVAL DOSAGE : UNKNOWN DRUG TREATMENT DURATION:SINCE 10
     Dates: start: 20220510

REACTIONS (2)
  - Varicose vein [Recovering/Resolving]
  - Headache [Recovering/Resolving]

NARRATIVE: CASE EVENT DATE: 20220501
